FAERS Safety Report 18108910 (Version 1)
Quarter: 2020Q3

REPORT INFORMATION
  Report Type: Spontaneous
  Country: US (occurrence: US)
  Receive Date: 20200804
  Receipt Date: 20200804
  Transmission Date: 20201103
  Serious: No
  Sender: FDA-Public Use
  Company Number: US-PFIZER INC-2020290877

PATIENT
  Age: 53 Year
  Sex: Male

DRUGS (3)
  1. DULOXETINE. [Concomitant]
     Active Substance: DULOXETINE
     Dosage: UNK
  2. LYRICA [Suspect]
     Active Substance: PREGABALIN
     Indication: CHEST PAIN
     Dosage: UNK
  3. PREGABALIN. [Suspect]
     Active Substance: PREGABALIN
     Indication: CHEST PAIN
     Dosage: UNK

REACTIONS (5)
  - Intervertebral disc degeneration [Unknown]
  - Disturbance in attention [Unknown]
  - Product use in unapproved indication [Unknown]
  - Off label use [Unknown]
  - Back pain [Unknown]
